FAERS Safety Report 23138636 (Version 2)
Quarter: 2023Q4

REPORT INFORMATION
  Report Type: Report from Study
  Country: US (occurrence: US)
  Receive Date: 20231102
  Receipt Date: 20231208
  Transmission Date: 20240110
  Serious: No
  Sender: FDA-Public Use
  Company Number: US-ALXN-A202213379

PATIENT
  Sex: Male

DRUGS (1)
  1. ULTOMIRIS [Suspect]
     Active Substance: RAVULIZUMAB-CWVZ
     Indication: Myasthenia gravis
     Dosage: UNK
     Route: 065
     Dates: start: 20221013

REACTIONS (8)
  - Cerebral disorder [Unknown]
  - Muscular weakness [Unknown]
  - Skin mass [Unknown]
  - Dysarthria [Unknown]
  - Gait disturbance [Not Recovered/Not Resolved]
  - Dyspnoea [Unknown]
  - Eye disorder [Unknown]
  - Arthralgia [Recovered/Resolved]
